FAERS Safety Report 7547886-X (Version None)
Quarter: 2011Q2

REPORT INFORMATION
  Report Type: 
  Country: None (occurrence: None)
  Receive Date: 20110615
  Receipt Date: 20110607
  Transmission Date: 20111010
  Serious: No
  Sender: FDA-Public Use
  Company Number: US-BIOGENIDEC-2011BI020758

PATIENT
  Age: 39 Year
  Sex: Female

DRUGS (4)
  1. TYSABRI [Suspect]
     Indication: MULTIPLE SCLEROSIS
     Route: 042
     Dates: start: 20071015
  2. AVONEX [Concomitant]
     Indication: MULTIPLE SCLEROSIS
     Route: 030
  3. CHANTIX [Concomitant]
     Indication: PRODUCT USED FOR UNKNOWN INDICATION
  4. TYSABRI [Suspect]
     Route: 042
     Dates: start: 20050111, end: 20050211

REACTIONS (1)
  - SUICIDAL IDEATION [None]
